FAERS Safety Report 9261863 (Version 1)
Quarter: 2013Q2

REPORT INFORMATION
  Report Type: Spontaneous
  Country: GB (occurrence: GB)
  Receive Date: 20130429
  Receipt Date: 20130429
  Transmission Date: 20140414
  Serious: Yes (Hospitalization)
  Sender: FDA-Public Use
  Company Number: GB-MYLANLABS-2013S1008619

PATIENT
  Age: 59 Year
  Sex: Male

DRUGS (4)
  1. LITHIUM [Suspect]
     Indication: BIPOLAR DISORDER
     Dosage: LONG-TERM TREATMENT
     Route: 065
  2. QUETIAPINE [Concomitant]
     Indication: BIPOLAR DISORDER
     Route: 065
  3. MODECATE [Concomitant]
     Indication: BIPOLAR DISORDER
     Route: 065
  4. INSULIN [Concomitant]
     Indication: TYPE 2 DIABETES MELLITUS
     Dosage: BASAL BOLUS INSULIN REGIME
     Route: 065

REACTIONS (2)
  - Nephrogenic diabetes insipidus [Unknown]
  - Osmotic demyelination syndrome [Unknown]
